FAERS Safety Report 10527956 (Version 1)
Quarter: 2014Q4

REPORT INFORMATION
  Report Type: Spontaneous
  Country: US (occurrence: US)
  Receive Date: 20141020
  Receipt Date: 20141020
  Transmission Date: 20150528
  Serious: Yes (Other)
  Sender: FDA-Public Use
  Company Number: US-MYLANLABS-2014M1007087

PATIENT

DRUGS (2)
  1. METHOTREXATE [Suspect]
     Active Substance: METHOTREXATE
     Dosage: UNK UNK, QW
  2. MEDROL [Suspect]
     Active Substance: METHYLPREDNISOLONE
     Indication: SYSTEMIC LUPUS ERYTHEMATOSUS
     Dosage: 64 MG, UNK
     Route: 048
     Dates: start: 20140804, end: 20140828

REACTIONS (17)
  - Sjogren^s syndrome [Recovering/Resolving]
  - Asthenia [Recovering/Resolving]
  - Pallor [Recovering/Resolving]
  - Hypotonia [Recovering/Resolving]
  - Hypertension [Recovering/Resolving]
  - Rash [Recovering/Resolving]
  - Gastrooesophageal reflux disease [Recovering/Resolving]
  - Fatigue [Recovering/Resolving]
  - Diabetes mellitus [Recovering/Resolving]
  - Abdominal pain upper [Recovering/Resolving]
  - Oedema [Recovering/Resolving]
  - Lipohypertrophy [Recovering/Resolving]
  - Depression [Recovering/Resolving]
  - Face oedema [Recovering/Resolving]
  - Unevaluable event [Recovering/Resolving]
  - Contusion [Recovering/Resolving]
  - Cushing^s syndrome [Recovering/Resolving]

NARRATIVE: CASE EVENT DATE: 201408
